FAERS Safety Report 5817760-5 (Version None)
Quarter: 2008Q3

REPORT INFORMATION
  Report Type: 
  Country: None (occurrence: None)
  Receive Date: 20080722
  Receipt Date: 20070711
  Transmission Date: 20090109
  Serious: No
  Sender: FDA-Public Use
  Company Number: US-TYCO HEALTHCARE/MALLINCKRODT-T200700801

PATIENT
  Age: 60 Year
  Sex: Female

DRUGS (4)
  1. ULTRATAG [Suspect]
     Indication: RADIOISOTOPE SCAN
     Dosage: 25.4 MCI, SINGLE
     Dates: start: 20070711, end: 20070711
  2. ADRIAMYCIN PFS [Concomitant]
  3. TAXOL [Concomitant]
  4. HERCEPTIN [Concomitant]

REACTIONS (1)
  - DRUG INEFFECTIVE [None]
